FAERS Safety Report 23743283 (Version 2)
Quarter: 2024Q2

REPORT INFORMATION
  Report Type: Spontaneous
  Country: JP (occurrence: JP)
  Receive Date: 20240415
  Receipt Date: 20240426
  Transmission Date: 20240715
  Serious: Yes (Hospitalization)
  Sender: FDA-Public Use
  Company Number: JP-MALLINCKRODT-MNK202402503

PATIENT
  Age: 60 Year
  Sex: Male
  Weight: 59 kg

DRUGS (3)
  1. NITRIC OXIDE [Suspect]
     Active Substance: NITRIC OXIDE
     Indication: Pulmonary hypertension
     Dosage: 20 PPM (RESPIRATORY)
     Route: 055
     Dates: start: 20220928, end: 2022
  2. NITRIC OXIDE [Suspect]
     Active Substance: NITRIC OXIDE
     Dosage: 0.6 PPM (RESPIRATORY)
     Route: 055
     Dates: start: 2022, end: 2022
  3. NITRIC OXIDE [Suspect]
     Active Substance: NITRIC OXIDE
     Dosage: 0.1 PPM (RESPIRATORY)
     Route: 055
     Dates: start: 2022, end: 20221006

REACTIONS (3)
  - Pulmonary vascular resistance abnormality [Recovering/Resolving]
  - Pulmonary arterial hypertension [Recovering/Resolving]
  - Hypotension [Recovering/Resolving]

NARRATIVE: CASE EVENT DATE: 20221004
